FAERS Safety Report 13336189 (Version 1)
Quarter: 2017Q1

REPORT INFORMATION
  Report Type: Report from Study
  Country: US (occurrence: US)
  Receive Date: 20170315
  Receipt Date: 20170315
  Transmission Date: 20170428
  Serious: Yes (Other)
  Sender: FDA-Public Use
  Company Number: US-TAIHO ONCOLOGY INC-EU-2017-00124

PATIENT
  Sex: Male

DRUGS (1)
  1. LONSURF [Suspect]
     Active Substance: TIPIRACIL HYDROCHLORIDE\TRIFLURIDINE
     Indication: COLON CANCER
     Dosage: CYCLE 3 STARTED ON AN UNSPECIFIED DATE IN 2016
     Route: 048
     Dates: start: 20161024, end: 20161230

REACTIONS (6)
  - White blood cell count decreased [Recovered/Resolved]
  - Ascites [Unknown]
  - Weight fluctuation [Unknown]
  - Hepatic cirrhosis [Unknown]
  - Platelet count decreased [Recovered/Resolved]
  - Disease progression [Unknown]
